FAERS Safety Report 11205447 (Version 2)
Quarter: 2015Q2

REPORT INFORMATION
  Report Type: Spontaneous
  Country: US (occurrence: US)
  Receive Date: 20150622
  Receipt Date: 20150625
  Transmission Date: 20150821
  Serious: No
  Sender: FDA-Public Use
  Company Number: US-BIOGENIDEC-2015BI084676

PATIENT
  Sex: Female

DRUGS (1)
  1. TECFIDERA [Suspect]
     Active Substance: DIMETHYL FUMARATE
     Indication: MULTIPLE SCLEROSIS
     Route: 048

REACTIONS (8)
  - Flushing [Unknown]
  - Malaise [Unknown]
  - Vision blurred [Unknown]
  - Anxiety [Unknown]
  - Hypoaesthesia [Unknown]
  - Pruritus [Unknown]
  - Off label use [Unknown]
  - Sleep disorder [Unknown]
